FAERS Safety Report 6280221-6 (Version None)
Quarter: 2009Q3

REPORT INFORMATION
  Report Type: 
  Country: None (occurrence: None)
  Receive Date: 20090723
  Receipt Date: 20090720
  Transmission Date: 20100115
  Serious: Yes (Disabling)
  Sender: FDA-Public Use
  Company Number: GB-MERCK-0907GBR00076

PATIENT
  Age: 30 Year
  Sex: Female

DRUGS (3)
  1. ZETIA [Suspect]
     Route: 048
  2. SIMVASTATIN [Concomitant]
     Route: 065
     Dates: start: 20080101
  3. FENOFIBRATE [Concomitant]
     Route: 065
     Dates: start: 20080101

REACTIONS (2)
  - OEDEMA PERIPHERAL [None]
  - PAIN IN EXTREMITY [None]
